FAERS Safety Report 7621416-6 (Version None)
Quarter: 2011Q3

REPORT INFORMATION
  Report Type: 
  Country: None (occurrence: None)
  Receive Date: 20110719
  Receipt Date: 20110527
  Transmission Date: 20111222
  Serious: Yes (Hospitalization, Other)
  Sender: FDA-Public Use
  Company Number: US-MYLANLABS-2011S1011300

PATIENT
  Age: 43 Year
  Sex: Female

DRUGS (3)
  1. DIVALPROEX SODIUM EXTENDED RELEASE [Suspect]
     Indication: EPILEPSY
     Route: 048
     Dates: start: 20100601, end: 20110516
  2. HYDROCHLOROTHIAZIDE [Concomitant]
  3. ALPRAZOLAM [Concomitant]

REACTIONS (2)
  - CONVULSION [None]
  - DRUG EFFECT DECREASED [None]
